FAERS Safety Report 21684468 (Version 1)
Quarter: 2022Q4

REPORT INFORMATION
  Report Type: Spontaneous
  Country: US (occurrence: US)
  Receive Date: 20221205
  Receipt Date: 20221205
  Transmission Date: 20230112
  Serious: No
  Sender: FDA-Public Use
  Company Number: US-BoehringerIngelheim-2022-BI-205845

PATIENT
  Age: 54 Year
  Sex: Male

DRUGS (1)
  1. COMBIVENT RESPIMAT [Suspect]
     Active Substance: ALBUTEROL SULFATE\IPRATROPIUM BROMIDE
     Indication: Chronic obstructive pulmonary disease

REACTIONS (5)
  - Joint injury [Not Recovered/Not Resolved]
  - Fall [Recovered/Resolved with Sequelae]
  - Spinal fracture [Not Recovered/Not Resolved]
  - Movement disorder [Unknown]
  - Sensitivity to weather change [Unknown]

NARRATIVE: CASE EVENT DATE: 20190716
